FAERS Safety Report 8138959-1 (Version None)
Quarter: 2012Q1

REPORT INFORMATION
  Report Type: 
  Country: None (occurrence: None)
  Receive Date: 20120215
  Receipt Date: 20120206
  Transmission Date: 20120608
  Serious: Yes (Death)
  Sender: FDA-Public Use
  Company Number: CH-UCBSA-051149

PATIENT
  Age: 85 Year
  Sex: Female

DRUGS (2)
  1. MORPHIUM [Concomitant]
     Indication: PALLIATIVE CARE
  2. KEPPRA [Suspect]
     Dosage: UNKNOWN DOSE: ROUTE IS GIVEN AS ^IV^
     Route: 042

REACTIONS (1)
  - DEATH [None]
